FAERS Safety Report 7631787-2 (Version None)
Quarter: 2011Q3

REPORT INFORMATION
  Report Type: 
  Country: None (occurrence: None)
  Receive Date: 20110725
  Receipt Date: 20110318
  Transmission Date: 20111222
  Serious: Yes (Other)
  Sender: FDA-Public Use
  Company Number: US-BRISTOL-MYERS SQUIBB COMPANY-15619349

PATIENT
  Age: 69 Year
  Sex: Female
  Weight: 63 kg

DRUGS (12)
  1. NON-MEDICINAL PRODUCT [Suspect]
  2. POTASSIUM CHLORIDE [Concomitant]
  3. XANAX [Concomitant]
  4. VITAMIN B6 [Concomitant]
  5. CALCIUM CITRATE [Concomitant]
  6. CISPLATIN [Concomitant]
  7. ETOPOSIDE [Concomitant]
  8. ZOLOFT [Concomitant]
  9. COUMADIN [Suspect]
     Indication: PULMONARY EMBOLISM
     Dosage: DOSE INCREASED TO 7.5 MG ALTERNATING WITH 10 MG DAILY.
  10. MULTI-VITAMIN [Concomitant]
  11. VITAMIN B-12 [Concomitant]
  12. VITAMIN D [Concomitant]

REACTIONS (1)
  - INTERNATIONAL NORMALISED RATIO DECREASED [None]
